FAERS Safety Report 8584593-9 (Version None)
Quarter: 2012Q3

REPORT INFORMATION
  Report Type: 
  Country: None (occurrence: None)
  Receive Date: 20120810
  Receipt Date: 20120809
  Transmission Date: 20120928
  Serious: Yes (Other)
  Sender: FDA-Public Use
  Company Number: CN-BAYER-2012-080009

PATIENT
  Age: 43 Year
  Sex: Female
  Weight: 48 kg

DRUGS (7)
  1. CEDILANID [Suspect]
     Route: 042
  2. AVELOX [Suspect]
     Dosage: UNK
     Route: 041
     Dates: end: 20101011
  3. SPIROLONE [Concomitant]
     Indication: OEDEMA
  4. PERINDOPRIL ERBUMINE [Concomitant]
     Indication: UNEVALUABLE EVENT
  5. CORDARONE [Suspect]
     Dosage: UNK
     Route: 041
     Dates: end: 20101011
  6. WARFARIN SODIUM [Concomitant]
     Indication: ANTICOAGULANT THERAPY
  7. CEFOPERAZONE W/SULBACTAM [Concomitant]
     Indication: UNEVALUABLE EVENT
     Route: 041

REACTIONS (8)
  - ELECTROCARDIOGRAM QT PROLONGED [None]
  - LOSS OF CONSCIOUSNESS [None]
  - RESPIRATORY ARREST [None]
  - TORSADE DE POINTES [None]
  - CARDIAC ARREST [None]
  - ATRIAL FIBRILLATION [None]
  - VENTRICULAR FIBRILLATION [None]
  - DYSPNOEA [None]
